FAERS Safety Report 5583959-9 (Version None)
Quarter: 2008Q1

REPORT INFORMATION
  Report Type: 
  Country: None (occurrence: None)
  Receive Date: 20080103
  Receipt Date: 20080103
  Transmission Date: 20080703
  Serious: Yes (Hospitalization)
  Sender: FDA-Public Use
  Company Number: None

PATIENT
  Age: 86 Year
  Sex: Male

DRUGS (2)
  1. WARFARIN SODIUM [Suspect]
     Indication: ATRIAL FIBRILLATION
     Dosage: 1MG EVERY DAY PO
     Route: 048
     Dates: start: 19961008, end: 20070521
  2. INDOMETHACIN [Suspect]
     Indication: ARTHRALGIA
     Dosage: 25MG TID PO
     Route: 048
     Dates: start: 20070516, end: 20070521

REACTIONS (2)
  - GASTRIC HAEMORRHAGE [None]
  - HAEMATEMESIS [None]
